FAERS Safety Report 9135892 (Version 1)
Quarter: 2013Q1

REPORT INFORMATION
  Report Type: Spontaneous
  Country: US (occurrence: US)
  Receive Date: 20130219
  Receipt Date: 20130219
  Transmission Date: 20140127
  Serious: No
  Sender: FDA-Public Use
  Company Number: US-BRISTOL-MYERS SQUIBB COMPANY-17126111

PATIENT
  Age: 46 Year
  Sex: Female
  Weight: 65.3 kg

DRUGS (1)
  1. ABATACEPT SUBQ INJECTION 125MG/ML [Suspect]
     Indication: RHEUMATOID ARTHRITIS
     Dosage: STARTED IN DEC2011 OR JAN2012 AND LAST INF:MAY2012.
     Route: 058
     Dates: end: 201205

REACTIONS (3)
  - Animal scratch [Unknown]
  - Wound [Unknown]
  - Nail injury [Unknown]
